FAERS Safety Report 25913439 (Version 2)
Quarter: 2025Q4

REPORT INFORMATION
  Report Type: Spontaneous
  Country: CO (occurrence: CO)
  Receive Date: 20251013
  Receipt Date: 20251017
  Transmission Date: 20260118
  Serious: Yes (Hospitalization)
  Sender: ORPHALAN
  Company Number: CO-ORPHALAN-CO-ORP-25-00251

PATIENT
  Age: 17 Year
  Sex: Male
  Weight: 62 kg

DRUGS (1)
  1. TRIENTINE TETRAHYDROCHLORIDE [Suspect]
     Active Substance: TRIENTINE TETRAHYDROCHLORIDE
     Indication: Hepato-lenticular degeneration
     Dosage: 450 MILLIGRAM, QD
     Route: 048
     Dates: start: 20240226

REACTIONS (2)
  - Dengue fever [Recovering/Resolving]
  - Varicella [Recovering/Resolving]

NARRATIVE: CASE EVENT DATE: 20250926
